FAERS Safety Report 10571550 (Version 2)
Quarter: 2014Q4

REPORT INFORMATION
  Report Type: Report from Study
  Country: BR (occurrence: BR)
  Receive Date: 20141107
  Receipt Date: 20141210
  Transmission Date: 20150529
  Serious: Yes (Other)
  Sender: FDA-Public Use
  Company Number: PHHY2014BR144777

PATIENT
  Sex: Female
  Weight: 53 kg

DRUGS (1)
  1. SANDOSTATIN LAR DEPOT [Suspect]
     Active Substance: OCTREOTIDE ACETATE
     Indication: HEPATIC LESION
     Dosage: 1 DF, QMO (BETWEEN DAYS 26 TO 28)
     Route: 065
     Dates: end: 201410

REACTIONS (7)
  - Inflammation [Unknown]
  - Pain [Recovered/Resolved]
  - Product use issue [Unknown]
  - Parathyroid disorder [Unknown]
  - Nodule [Recovered/Resolved]
  - Speech disorder [Unknown]
  - Gait disturbance [Recovered/Resolved]
